FAERS Safety Report 10023978 (Version 1)
Quarter: 2014Q1

REPORT INFORMATION
  Report Type: Spontaneous
  Country: US (occurrence: US)
  Receive Date: 20140320
  Receipt Date: 20140320
  Transmission Date: 20141002
  Serious: Yes (Death)
  Sender: FDA-Public Use
  Company Number: US-ASTELLAS-2014US002752

PATIENT
  Age: 45 Year
  Sex: Female

DRUGS (5)
  1. AMBISOME [Suspect]
     Indication: EVIDENCE BASED TREATMENT
     Dosage: UNK
     Route: 065
  2. AMBISOME [Suspect]
     Indication: ACUTE PULMONARY HISTOPLASMOSIS
  3. VANCOMYCIN [Concomitant]
     Indication: EVIDENCE BASED TREATMENT
     Dosage: UNK
     Route: 065
  4. CEFEPIME [Concomitant]
     Indication: EVIDENCE BASED TREATMENT
     Dosage: UNK
     Route: 065
  5. LEVOFLOXACIN [Concomitant]
     Indication: EVIDENCE BASED TREATMENT
     Dosage: UNK
     Route: 065

REACTIONS (1)
  - Drug ineffective [Fatal]
